FAERS Safety Report 23887042 (Version 1)
Quarter: 2024Q2

REPORT INFORMATION
  Report Type: Spontaneous
  Country: RU (occurrence: RU)
  Receive Date: 20240523
  Receipt Date: 20240523
  Transmission Date: 20240716
  Serious: Yes (Other)
  Sender: FDA-Public Use
  Company Number: RU-JNJFOC-20240546869

PATIENT

DRUGS (1)
  1. IMBRUVICA [Suspect]
     Active Substance: IBRUTINIB
     Indication: Chronic lymphocytic leukaemia
     Route: 048

REACTIONS (10)
  - Respiratory tract infection [Recovered/Resolved]
  - Diarrhoea [Unknown]
  - Therapeutic product effect incomplete [Unknown]
  - Pharyngitis [Recovered/Resolved]
  - Lymphocytosis [Unknown]
  - Autoimmune disorder [Unknown]
  - Purpura [Recovered/Resolved]
  - Herpes virus infection [Recovered/Resolved]
  - Bronchitis [Recovered/Resolved]
  - Autoimmune haemolytic anaemia [Recovered/Resolved]
